FAERS Safety Report 4430550-3 (Version None)
Quarter: 2004Q3

REPORT INFORMATION
  Report Type: 
  Country: None (occurrence: None)
  Receive Date: 20040818
  Receipt Date: 20040806
  Transmission Date: 20050211
  Serious: Yes (Hospitalization, Disabling, Other)
  Sender: FDA-Public Use
  Company Number: 2001059497AT

PATIENT
  Age: 30 Year
  Sex: Female
  Weight: 51 kg

DRUGS (3)
  1. MEDROXYPROGESTERONE ACETATE [Suspect]
     Indication: CONTRACEPTION
     Dosage: SEE IMAGE
     Route: 030
     Dates: start: 19990101, end: 19990101
  2. MEDROXYPROGESTERONE ACETATE [Suspect]
     Indication: CONTRACEPTION
     Dosage: SEE IMAGE
     Route: 030
     Dates: start: 20010401, end: 20010401
  3. ATORVASTATIN CALCIUM [Concomitant]

REACTIONS (7)
  - AMENORRHOEA [None]
  - CIRCULATORY COLLAPSE [None]
  - FIBROMYALGIA [None]
  - PARAESTHESIA [None]
  - PERSONALITY DISORDER [None]
  - SPEECH DISORDER [None]
  - VISUAL DISTURBANCE [None]
